FAERS Safety Report 16722975 (Version 2)
Quarter: 2019Q3

REPORT INFORMATION
  Report Type: Spontaneous
  Country: US (occurrence: US)
  Receive Date: 20190821
  Receipt Date: 20190822
  Transmission Date: 20191005
  Serious: Yes (Hospitalization)
  Sender: FDA-Public Use
  Company Number: US-BIOGEN-2019BI00775468

PATIENT
  Sex: Female

DRUGS (1)
  1. TECFIDERA [Suspect]
     Active Substance: DIMETHYL FUMARATE
     Indication: MULTIPLE SCLEROSIS
     Route: 048
     Dates: start: 20151203

REACTIONS (4)
  - Confusional state [Not Recovered/Not Resolved]
  - Cardiac disorder [Unknown]
  - Product dose omission [Not Recovered/Not Resolved]
  - Multiple sclerosis relapse [Recovered/Resolved]
